FAERS Safety Report 21063533 (Version 1)
Quarter: 2022Q3

REPORT INFORMATION
  Report Type: Spontaneous
  Country: BR (occurrence: BR)
  Receive Date: 20220711
  Receipt Date: 20220711
  Transmission Date: 20221027
  Serious: Yes (Other)
  Sender: FDA-Public Use
  Company Number: BR-SUN PHARMACEUTICAL INDUSTRIES LTD-2022R1-344033

PATIENT
  Age: 70 Year
  Sex: Female

DRUGS (3)
  1. PREDNISONE [Suspect]
     Active Substance: PREDNISONE
     Indication: Enteropathy-associated T-cell lymphoma
     Dosage: UNK
     Route: 065
  2. CYCLOPHOSPHAMIDE [Suspect]
     Active Substance: CYCLOPHOSPHAMIDE
     Indication: Enteropathy-associated T-cell lymphoma
     Dosage: UNK
     Route: 065
  3. EPIRUBICIN [Suspect]
     Active Substance: EPIRUBICIN
     Indication: Enteropathy-associated T-cell lymphoma
     Dosage: UNK
     Route: 065

REACTIONS (1)
  - Therapy partial responder [Unknown]
